FAERS Safety Report 5083173-X (Version None)
Quarter: 2006Q3

REPORT INFORMATION
  Report Type: 
  Country: None (occurrence: None)
  Receive Date: 20060818
  Receipt Date: 20060814
  Transmission Date: 20061208
  Serious: Yes (Death, Hospitalization)
  Sender: FDA-Public Use
  Company Number: PHEH2006US10381

PATIENT
  Age: 25 Year
  Sex: Female

DRUGS (5)
  1. EXJADE [Suspect]
     Indication: SERUM FERRITIN INCREASED
     Dosage: 1100 MG, QD
     Route: 048
     Dates: start: 20060330
  2. COREG [Concomitant]
  3. SYNTHROID [Concomitant]
  4. ALTACE [Concomitant]
  5. LORCET-HD [Concomitant]

REACTIONS (12)
  - ABDOMINAL DISTENSION [None]
  - ABDOMINAL PAIN [None]
  - ANAEMIA [None]
  - BOWEL SOUNDS ABNORMAL [None]
  - BREATH SOUNDS ABNORMAL [None]
  - CARDIAC ARREST [None]
  - DEATH [None]
  - JAUNDICE [None]
  - LIVER DISORDER [None]
  - MULTI-ORGAN FAILURE [None]
  - PALLOR [None]
  - THROMBOCYTOPENIA [None]
